FAERS Safety Report 21437988 (Version 2)
Quarter: 2023Q2

REPORT INFORMATION
  Report Type: Report from Study
  Country: US (occurrence: US)
  Receive Date: 20221011
  Receipt Date: 20230627
  Transmission Date: 20230722
  Serious: No
  Sender: FDA-Public Use
  Company Number: US-ABBVIE-4148806

PATIENT
  Sex: Female

DRUGS (4)
  1. SKYRIZI [Suspect]
     Active Substance: RISANKIZUMAB-RZAA
     Indication: Psoriasis
     Route: 058
     Dates: start: 20220228
  2. SKYRIZI [Suspect]
     Active Substance: RISANKIZUMAB-RZAA
     Indication: Psoriatic arthropathy
  3. MODERNA COVID-19 VACCINE [Concomitant]
     Active Substance: ELASOMERAN
     Indication: COVID-19 immunisation
     Dosage: 1 IN ONCE
     Route: 030
  4. MODERNA COVID-19 VACCINE [Concomitant]
     Active Substance: ELASOMERAN
     Indication: COVID-19 immunisation
     Dosage: BOOSTER DOSE?1 IN ONCE
     Dates: start: 202101, end: 202101

REACTIONS (4)
  - Skin exfoliation [Not Recovered/Not Resolved]
  - Skin exfoliation [Not Recovered/Not Resolved]
  - Pruritus [Not Recovered/Not Resolved]
  - Pruritus [Not Recovered/Not Resolved]
